FAERS Safety Report 5931819-3 (Version None)
Quarter: 2008Q4

REPORT INFORMATION
  Report Type: 
  Country: None (occurrence: None)
  Receive Date: 20081027
  Receipt Date: 20081016
  Transmission Date: 20090506
  Serious: Yes (Other)
  Sender: FDA-Public Use
  Company Number: US-PFIZER INC-2008038833

PATIENT
  Sex: Female
  Weight: 111.36 kg

DRUGS (10)
  1. XANAX [Suspect]
     Indication: ANXIETY
  2. XANAX [Suspect]
     Indication: DEPRESSION
  3. LYRICA [Suspect]
     Indication: MIGRAINE
     Dates: start: 20050101
  4. CHANTIX [Suspect]
     Indication: SMOKING CESSATION THERAPY
     Dates: start: 20080401, end: 20080503
  5. ATENOLOL [Concomitant]
  6. AXERT [Concomitant]
     Indication: MIGRAINE
  7. ACTOS [Concomitant]
  8. CYMBALTA [Concomitant]
  9. AMITRIPTYLINE HCL [Concomitant]
  10. GLUCOPHAGE [Concomitant]

REACTIONS (15)
  - ABNORMAL DREAMS [None]
  - CIRCUMSTANCE OR INFORMATION CAPABLE OF LEADING TO MEDICATION ERROR [None]
  - DEPRESSION [None]
  - DRUG INEFFECTIVE [None]
  - ENDOMETRIAL HYPERTROPHY [None]
  - IMPAIRED WORK ABILITY [None]
  - NERVOUSNESS [None]
  - NIGHTMARE [None]
  - OEDEMA PERIPHERAL [None]
  - PAROSMIA [None]
  - POOR QUALITY SLEEP [None]
  - STAPHYLOCOCCAL INFECTION [None]
  - SYNOVIAL CYST [None]
  - TENDON OPERATION [None]
  - VAGINAL HAEMORRHAGE [None]
